FAERS Safety Report 8769776 (Version 1)
Quarter: 2012Q4

REPORT INFORMATION
  Report Type: 
  Country: US (occurrence: US)
  Receive Date: 20120906
  Receipt Date: 20120906
  Transmission Date: 20130627
  Serious: No
  Sender: FDA-Public Use
  Company Number: US-BAYER-2012-090806

PATIENT
  Age: 60 Year
  Sex: Female
  Weight: 75 kg

DRUGS (13)
  1. BETASERON [Suspect]
     Dosage: .25 mg, QOD
     Route: 058
  2. AMPYRA [Suspect]
  3. KLONOPIN [Concomitant]
     Dosage: 0.5 mg, UNK
  4. GABAPENTIN [Concomitant]
     Dosage: 100 mg, UNK
  5. WELLBUTRIN [Concomitant]
     Dosage: 75 mg, UNK
  6. LEVOTHYROXIN [Concomitant]
     Dosage: 88 ?g, UNK
  7. IBUPROFEN [Concomitant]
     Dosage: 200 mg, UNK
  8. MULTIVITAMIN [Concomitant]
  9. OMEGA-3 [Concomitant]
  10. ACETYLSALICYLIC ACID({=100 MG) [Concomitant]
     Dosage: 81 mg, UNK
  11. FLAX SEED OIL [Concomitant]
  12. CALCIUM CITRATE W/VITAMIN D NOS [Concomitant]
  13. VITAMIN D3 [Concomitant]

REACTIONS (7)
  - Hypoaesthesia [Unknown]
  - Burning sensation [Unknown]
  - Pain in extremity [Unknown]
  - Influenza like illness [Unknown]
  - Injection site pain [Unknown]
  - Injection site erythema [Unknown]
  - Gait disturbance [Unknown]
